FAERS Safety Report 7129175-0 (Version None)
Quarter: 2010Q4

REPORT INFORMATION
  Report Type: 
  Country: None (occurrence: None)
  Receive Date: 20101130
  Receipt Date: 20101119
  Transmission Date: 20110411
  Serious: Yes (Hospitalization, Other)
  Sender: FDA-Public Use
  Company Number: US-MERCK-1003USA00423

PATIENT
  Age: 55 Year
  Sex: Female

DRUGS (2)
  1. FOSAMAX [Suspect]
     Route: 048
  2. FOSAMAX [Suspect]
     Route: 048
     Dates: start: 20060401, end: 20060801

REACTIONS (42)
  - ABSCESS [None]
  - ADVERSE DRUG REACTION [None]
  - ANXIETY [None]
  - ASTHMA [None]
  - BIPOLAR I DISORDER [None]
  - BONE DENSITY DECREASED [None]
  - BONE DISORDER [None]
  - BRONCHOSPASM [None]
  - CHRONIC OBSTRUCTIVE PULMONARY DISEASE [None]
  - CONVULSION [None]
  - DENTAL CARIES [None]
  - DIABETES MELLITUS [None]
  - DIARRHOEA [None]
  - EATING DISORDER [None]
  - EMPHYSEMA [None]
  - EPSTEIN-BARR VIRAEMIA [None]
  - FISTULA [None]
  - FOCAL NODULAR HYPERPLASIA [None]
  - GASTROOESOPHAGEAL REFLUX DISEASE [None]
  - HYPOTHYROIDISM [None]
  - IMPAIRED HEALING [None]
  - INFECTION [None]
  - IRRITABLE BOWEL SYNDROME [None]
  - LUNG NEOPLASM MALIGNANT [None]
  - NAUSEA [None]
  - NEUROPATHY PERIPHERAL [None]
  - NOCTURIA [None]
  - ORAL CANDIDIASIS [None]
  - ORAL DISORDER [None]
  - OSTEOARTHRITIS [None]
  - OSTEOMYELITIS [None]
  - OSTEONECROSIS OF JAW [None]
  - PNEUMONIA [None]
  - SCHIZOID PERSONALITY DISORDER [None]
  - SLEEP APNOEA SYNDROME [None]
  - SPINAL OSTEOARTHRITIS [None]
  - STOMATITIS [None]
  - THYROID DISORDER [None]
  - TOOTH DISORDER [None]
  - TOOTH FRACTURE [None]
  - TOOTHACHE [None]
  - WHIPLASH INJURY [None]
